FAERS Safety Report 24614525 (Version 1)
Quarter: 2024Q4

REPORT INFORMATION
  Report Type: Spontaneous
  Country: US (occurrence: US)
  Receive Date: 20241113
  Receipt Date: 20241113
  Transmission Date: 20250114
  Serious: No
  Sender: MERZ
  Company Number: US-Merz Pharmaceuticals GmbH-2024100000204

PATIENT

DRUGS (1)
  1. XEOMIN [Suspect]
     Active Substance: INCOBOTULINUMTOXINA
     Indication: Facial spasm
     Dosage: 50 INTERNATIONAL UNIT
     Route: 030

REACTIONS (1)
  - Off label use [Unknown]
